FAERS Safety Report 7867121 (Version 2)
Quarter: 2012Q4

REPORT INFORMATION
  Report Type: Report from Study
  Country: CH (occurrence: CH)
  Receive Date: 20110323
  Receipt Date: 20121112
  Transmission Date: 20130627
  Serious: Yes (Other)
  Sender: FDA-Public Use
  Company Number: CH-CELGENEUS-151-50794-11030386

PATIENT
  Age: 74 Year
  Sex: Female

DRUGS (3)
  1. VIDAZA [Suspect]
     Indication: ACUTE MYELOID LEUKEMIA
     Dosage: 170 Milligram
     Route: 058
     Dates: start: 20091209
  2. VIDAZA [Suspect]
     Dosage: 170 Milligram
     Route: 058
     Dates: start: 20101025, end: 20101029
  3. VIDAZA [Suspect]
     Dosage: 85 Milligram
     Route: 058
     Dates: start: 20101122, end: 20101127

REACTIONS (1)
  - Neutropenia [Recovered/Resolved with Sequelae]
